FAERS Safety Report 7846155-8 (Version None)
Quarter: 2011Q4

REPORT INFORMATION
  Report Type: 
  Country: None (occurrence: None)
  Receive Date: 20111025
  Receipt Date: 20111018
  Transmission Date: 20120403
  Serious: Yes (Other)
  Sender: FDA-Public Use
  Company Number: FI-BAXTER-2011BH033258

PATIENT

DRUGS (3)
  1. CYCLOSPORINE [Concomitant]
     Indication: GLOMERULONEPHRITIS MEMBRANOUS
     Route: 065
  2. CYCLOPHOSPHAMIDE [Suspect]
     Indication: GLOMERULONEPHRITIS MEMBRANOUS
     Route: 048
  3. METHYLPREDNISOLONE [Concomitant]
     Indication: GLOMERULONEPHRITIS MEMBRANOUS
     Route: 042

REACTIONS (1)
  - HEPATITIS [None]
